FAERS Safety Report 11727714 (Version 1)
Quarter: 2015Q4

REPORT INFORMATION
  Report Type: Spontaneous
  Country: US (occurrence: US)
  Receive Date: 20151112
  Receipt Date: 20151112
  Transmission Date: 20160304
  Serious: No
  Sender: FDA-Public Use
  Company Number: US-CELGENEUS-USA-2015085827

PATIENT
  Sex: Male
  Weight: 51.3 kg

DRUGS (2)
  1. REVLIMID [Suspect]
     Active Substance: LENALIDOMIDE
     Indication: PANCREATIC CARCINOMA
     Dosage: 25 MILLIGRAM
     Route: 048
     Dates: start: 20150518
  2. ECOTRIN [Concomitant]
     Active Substance: ASPIRIN
     Indication: PRODUCT USED FOR UNKNOWN INDICATION
     Route: 065

REACTIONS (2)
  - Weight decreased [Unknown]
  - Rash macular [Unknown]

NARRATIVE: CASE EVENT DATE: 2015
